FAERS Safety Report 7920076-4 (Version None)
Quarter: 2011Q4

REPORT INFORMATION
  Report Type: 
  Country: None (occurrence: None)
  Receive Date: 20111117
  Receipt Date: 20111102
  Transmission Date: 20120403
  Serious: Yes (Other)
  Sender: FDA-Public Use
  Company Number: US-ROCHE-1013322

PATIENT
  Age: 46 Year
  Sex: Female

DRUGS (4)
  1. DOCETAXEL [Suspect]
     Indication: BREAST CANCER
     Dates: start: 20100701
  2. TRIPTORELIN PAMOATE [Suspect]
     Indication: BREAST CANCER
     Route: 030
     Dates: start: 20100701
  3. HERCEPTIN [Suspect]
     Indication: BREAST CANCER
     Dates: start: 20100701
  4. CARBOPLATIN [Suspect]
     Indication: BREAST CANCER
     Dates: start: 20100701

REACTIONS (1)
  - RETINAL DETACHMENT [None]
